FAERS Safety Report 20033154 (Version 4)
Quarter: 2024Q2

REPORT INFORMATION
  Report Type: Report from Study
  Country: IT (occurrence: IT)
  Receive Date: 20211104
  Receipt Date: 20240427
  Transmission Date: 20240716
  Serious: Yes (Life-Threatening, Other)
  Sender: FDA-Public Use
  Company Number: IT-CELLTRION INC.-2021IT014831

PATIENT

DRUGS (1)
  1. TRASTUZUMAB [Suspect]
     Active Substance: TRASTUZUMAB
     Indication: Breast cancer metastatic
     Dosage: UNK

REACTIONS (2)
  - Laryngeal oedema [Recovered/Resolved]
  - Hypersensitivity [Recovered/Resolved]
